FAERS Safety Report 16890279 (Version 1)
Quarter: 2019Q4

REPORT INFORMATION
  Report Type: Report from Study
  Country: CO (occurrence: CO)
  Receive Date: 20191007
  Receipt Date: 20191007
  Transmission Date: 20200122
  Serious: Yes (Other)
  Sender: FDA-Public Use
  Company Number: CO-JNJFOC-20190937695

PATIENT
  Age: 78 Year
  Sex: Female
  Weight: 44 kg

DRUGS (1)
  1. STELARA [Suspect]
     Active Substance: USTEKINUMAB
     Indication: PSORIASIS
     Route: 058
     Dates: start: 2017, end: 20190228

REACTIONS (1)
  - Head and neck cancer [Recovering/Resolving]

NARRATIVE: CASE EVENT DATE: 20190708
